FAERS Safety Report 12862321 (Version 1)
Quarter: 2016Q4

REPORT INFORMATION
  Report Type: Spontaneous
  Country: US (occurrence: US)
  Receive Date: 20161018
  Receipt Date: 20161018
  Transmission Date: 20170207
  Serious: Yes (Other)
  Sender: FDA-Public Use
  Company Number: None

PATIENT
  Age: 16 Year
  Sex: Female
  Weight: 56.25 kg

DRUGS (27)
  1. HYQVIA [Suspect]
     Active Substance: HUMAN IMMUNOGLOBULIN G\HYALURONIDASE RECOMBINANT HUMAN
     Indication: IMMUNODEFICIENCY COMMON VARIABLE
     Dosage: 2.5 G WEEK 4 RAMP-UP DOS SUBCUTANEOUS
     Route: 058
     Dates: start: 20161013, end: 20161013
  2. QVAR [Concomitant]
     Active Substance: BECLOMETHASONE DIPROPIONATE
  3. FOLIC ACID. [Concomitant]
     Active Substance: FOLIC ACID
  4. MAGNESIUM OXIDE. [Concomitant]
     Active Substance: MAGNESIUM OXIDE
  5. MELATONIN [Concomitant]
     Active Substance: MELATONIN
  6. RASUVO [Concomitant]
     Active Substance: METHOTREXATE SODIUM
  7. TRAZODONE [Concomitant]
     Active Substance: TRAZODONE HYDROCHLORIDE
  8. DOXEPIN [Concomitant]
     Active Substance: DOXEPIN
  9. PROBIOTIC [Concomitant]
     Active Substance: PROBIOTICS NOS
  10. SENNA [Concomitant]
     Active Substance: SENNA LEAF\SENNOSIDES\SENNOSIDES A AND B
  11. ACETAZOLAMIDE. [Concomitant]
     Active Substance: ACETAZOLAMIDE
  12. ADDERALL [Concomitant]
     Active Substance: AMPHETAMINE ASPARTATE\AMPHETAMINE SULFATE\DEXTROAMPHETAMINE SACCHARATE\DEXTROAMPHETAMINE SULFATE
  13. OMEPRAZOLE. [Concomitant]
     Active Substance: OMEPRAZOLE
  14. CHOLECALCIFEROL [Concomitant]
     Active Substance: CHOLECALCIFEROL
  15. HYDROXYCHLOROQUINE [Concomitant]
     Active Substance: HYDROXYCHLOROQUINE
  16. TOPAMAX [Concomitant]
     Active Substance: TOPIRAMATE
  17. METHOTREXATE. [Concomitant]
     Active Substance: METHOTREXATE
  18. MULTIVITAMIN [Concomitant]
     Active Substance: VITAMINS
  19. BUTALBITAL-APAP-CAFF [Concomitant]
  20. LEVOTHYROXINE. [Concomitant]
     Active Substance: LEVOTHYROXINE
  21. MAXALT-MLT [Concomitant]
     Active Substance: RIZATRIPTAN BENZOATE
  22. HYQVIA [Suspect]
     Active Substance: HUMAN IMMUNOGLOBULIN G\HYALURONIDASE RECOMBINANT HUMAN
     Indication: IMMUNODEFICIENCY COMMON VARIABLE
     Dosage: 20 G WEEK 4 RAMP-UP DOS SUBCUTANEOUS
     Route: 058
     Dates: start: 20161013, end: 20161013
  23. PROAIR HFA [Concomitant]
     Active Substance: ALBUTEROL SULFATE
  24. CELEBREX [Concomitant]
     Active Substance: CELECOXIB
  25. FISH OIL [Concomitant]
     Active Substance: FISH OIL
  26. ZOFRAN [Concomitant]
     Active Substance: ONDANSETRON HYDROCHLORIDE
  27. LYRICA [Concomitant]
     Active Substance: PREGABALIN

REACTIONS (5)
  - Urinary incontinence [None]
  - Swelling [None]
  - Erythema [None]
  - Abdominal distension [None]
  - Pain [None]

NARRATIVE: CASE EVENT DATE: 20161013
